FAERS Safety Report 20469405 (Version 1)
Quarter: 2022Q1

REPORT INFORMATION
  Report Type: Spontaneous
  Country: US (occurrence: US)
  Receive Date: 20220214
  Receipt Date: 20220214
  Transmission Date: 20220423
  Serious: Yes (Other)
  Sender: FDA-Public Use
  Company Number: US-CELGENE-USA-20220202426

PATIENT
  Age: 51 Year
  Sex: Male

DRUGS (4)
  1. THALOMID [Suspect]
     Active Substance: THALIDOMIDE
     Indication: Cachexia
     Dosage: 200 MILLIGRAM
     Route: 048
     Dates: start: 202102
  2. THALOMID [Suspect]
     Active Substance: THALIDOMIDE
     Indication: Off label use
  3. LENVIMA [Concomitant]
     Active Substance: LENVATINIB
     Indication: Product used for unknown indication
     Route: 065
  4. CABOMETYX [Concomitant]
     Active Substance: CABOZANTINIB S-MALATE
     Indication: Product used for unknown indication
     Route: 065

REACTIONS (1)
  - Cachexia [Unknown]

NARRATIVE: CASE EVENT DATE: 20220207
